FAERS Safety Report 5267800-X (Version None)
Quarter: 2007Q1

REPORT INFORMATION
  Report Type: 
  Country: None (occurrence: None)
  Receive Date: 20070316
  Receipt Date: 20070306
  Transmission Date: 20070707
  Serious: Yes (Other)
  Sender: FDA-Public Use
  Company Number: AT-PFIZER INC-2007018176

PATIENT
  Sex: Female

DRUGS (8)
  1. LYRICA [Suspect]
     Indication: CENTRAL PAIN SYNDROME
     Route: 048
  2. AMLODIPIN ^ORIFARM^ [Concomitant]
  3. DIAMICRON [Concomitant]
  4. PANTOLOC ^SOLVAY^ [Concomitant]
  5. THROMBO ASS [Concomitant]
  6. AVANDAMET [Concomitant]
  7. MEPRIL [Concomitant]
  8. ROCALTROL [Concomitant]

REACTIONS (2)
  - EYELID OEDEMA [None]
  - OEDEMA PERIPHERAL [None]
